FAERS Safety Report 13490861 (Version 2)
Quarter: 2017Q2

REPORT INFORMATION
  Report Type: Spontaneous
  Country: CH (occurrence: CH)
  Receive Date: 20170427
  Receipt Date: 20170505
  Transmission Date: 20170830
  Serious: Yes (Death, Hospitalization)
  Sender: FDA-Public Use
  Company Number: CH-PFIZER INC-2017186298

PATIENT
  Age: 65 Year
  Sex: Male
  Weight: 100 kg

DRUGS (41)
  1. AMLODIPINE [Suspect]
     Active Substance: AMLODIPINE BESYLATE
     Dosage: UNK
     Dates: start: 20170220, end: 20170320
  2. VENTOLIN [Concomitant]
     Active Substance: ALBUTEROL SULFATE
     Dosage: UNK
  3. ESMERON [Concomitant]
     Active Substance: ROCURONIUM BROMIDE
     Dosage: UNK
  4. ATORVASTATIN PFIZER [Concomitant]
     Active Substance: ATORVASTATIN
     Dosage: UNK
  5. CALCIPARINE [Concomitant]
     Active Substance: HEPARIN CALCIUM
     Dosage: UNK
     Dates: start: 20170317, end: 20170328
  6. NEURONTIN [Concomitant]
     Active Substance: GABAPENTIN
     Dosage: UNK
  7. MAGNESIA S PELLEGRINO [Concomitant]
     Dosage: UNK
  8. BENERVA [Concomitant]
     Active Substance: THIAMINE
     Dosage: UNK
  9. DOBUTREX [Concomitant]
     Active Substance: DOBUTAMINE HYDROCHLORIDE
     Dosage: UNK
  10. RIFAMPICIN [Suspect]
     Active Substance: RIFAMPIN
     Dosage: UNK
     Route: 041
     Dates: start: 20170306, end: 20170313
  11. LISINOPRIL AND HYDROCHLOROTHIAZIDE [Concomitant]
     Active Substance: HYDROCHLOROTHIAZIDE\LISINOPRIL
     Indication: HYPERTENSION
     Dosage: UNK
     Route: 048
     Dates: end: 20170217
  12. SPASMO-URGENIN NEO [Concomitant]
     Active Substance: TROSPIUM
     Dosage: UNK
  13. HEPARIN [Concomitant]
     Active Substance: HEPARIN SODIUM
     Dosage: UNK
     Dates: start: 20170217
  14. METAMIZOL /06276704/ [Concomitant]
     Active Substance: METAMIZOLE SODIUM
     Dosage: UNK
  15. RENAGEL [Concomitant]
     Active Substance: SEVELAMER HYDROCHLORIDE
     Dosage: UNK
     Dates: start: 20170322
  16. BECOZYME /06817001/ [Concomitant]
     Dosage: UNK
  17. MIDAZOLAM [Concomitant]
     Active Substance: MIDAZOLAM HYDROCHLORIDE
     Dosage: UNK
  18. NEBIVOLOL. [Suspect]
     Active Substance: NEBIVOLOL
     Indication: TACHYCARDIA
     Dosage: UNK
     Route: 048
  19. QUETIAPIN SANDOZ [Suspect]
     Active Substance: QUETIAPINE
     Dosage: UNK, BID
     Route: 048
     Dates: start: 20170220, end: 20170401
  20. ZANIDIP [Concomitant]
     Active Substance: LERCANIDIPINE HYDROCHLORIDE
     Indication: HYPERTENSION
     Dosage: UNK
     Route: 048
     Dates: end: 20170217
  21. XYZAL [Concomitant]
     Active Substance: LEVOCETIRIZINE DIHYDROCHLORIDE
     Dosage: UNK
     Dates: start: 20170319
  22. ALUCOL /00082501/ [Concomitant]
     Dosage: UNK
  23. NORADRENALIN /00127501/ [Concomitant]
     Active Substance: NOREPINEPHRINE\NOREPINEPHRINE BITARTRATE
     Dosage: UNK
  24. PANTOZOL [Suspect]
     Active Substance: PANTOPRAZOLE SODIUM
     Dosage: 40 MG, 1X/DAY
     Route: 042
     Dates: start: 20170227, end: 20170322
  25. PANTOZOL [Suspect]
     Active Substance: PANTOPRAZOLE SODIUM
     Dosage: 40 MG, 1X/DAY
     Route: 042
     Dates: start: 20170328, end: 20170331
  26. METOLAZON [Concomitant]
     Active Substance: METOLAZONE
     Dosage: UNK
     Dates: start: 20170323
  27. COROTROP [Concomitant]
     Active Substance: MILRINONE LACTATE
     Dosage: UNK
  28. ULTIVA [Concomitant]
     Active Substance: REMIFENTANIL HYDROCHLORIDE
     Dosage: UNK
  29. TRACRIUM [Concomitant]
     Active Substance: ATRACURIUM BESYLATE
     Dosage: UNK
  30. VANCOCIN [Suspect]
     Active Substance: VANCOMYCIN HYDROCHLORIDE
     Dosage: UNK
     Route: 041
     Dates: start: 20170227, end: 20170320
  31. LASIX [Suspect]
     Active Substance: FUROSEMIDE
     Dosage: UNK
  32. ATROVENT [Concomitant]
     Active Substance: IPRATROPIUM BROMIDE
     Dosage: UNK
  33. FENTANYL SINTETICA [Concomitant]
     Active Substance: FENTANYL CITRATE
     Dosage: UNK
  34. TRANSIPEG /01618701/ [Concomitant]
     Active Substance: POLYETHYLENE GLYCOL 3350\POTASSIUM CHLORIDE\SODIUM BICARBONATE\SODIUM CHLORIDE\SODIUM SULFATE ANHYDROUS
     Dosage: UNK
  35. DUROGESIC [Concomitant]
     Active Substance: FENTANYL
     Dosage: UNK
  36. RIFADINE /00146901/ [Suspect]
     Active Substance: RIFAMPIN
     Dosage: UNK
     Route: 048
     Dates: start: 20170227, end: 20170306
  37. NOVALGIN [Concomitant]
     Active Substance: METAMIZOLE SODIUM
     Dosage: UNK
     Route: 042
  38. CEFEPIME [Concomitant]
     Active Substance: CEFEPIME HYDROCHLORIDE
     Dosage: UNK
     Dates: start: 20170221
  39. CUBICIN [Concomitant]
     Active Substance: DAPTOMYCIN
     Dosage: UNK
     Dates: start: 20170321
  40. RIFADINE /00146901/ [Suspect]
     Active Substance: RIFAMPIN
     Dosage: UNK
     Route: 048
     Dates: start: 20170314, end: 20170321
  41. DUROGESIC [Concomitant]
     Active Substance: FENTANYL
     Dosage: UNK
     Dates: start: 20170321, end: 20170322

REACTIONS (2)
  - Drug reaction with eosinophilia and systemic symptoms [Fatal]
  - Multiple organ dysfunction syndrome [Fatal]

NARRATIVE: CASE EVENT DATE: 20170319
